FAERS Safety Report 4614123-5 (Version None)
Quarter: 2005Q1

REPORT INFORMATION
  Report Type: 
  Country: None (occurrence: None)
  Receive Date: 20050316
  Receipt Date: 20050304
  Transmission Date: 20050727
  Serious: Yes (Death, Life-Threatening, Hospitalization, Disabling, Other)
  Sender: FDA-Public Use
  Company Number: 2005035374

PATIENT
  Age: 73 Year
  Sex: Female

DRUGS (2)
  1. LINEZOLID TABLET (LINEZOLID) [Suspect]
     Indication: HIP ARTHROPLASTY
     Dosage: TWICE DAILY, ORAL
     Route: 048
     Dates: start: 20031209, end: 20050118
  2. LINEZOLID TABLET (LINEZOLID) [Suspect]
     Indication: STAPHYLOCOCCAL INFECTION
     Dosage: TWICE DAILY, ORAL
     Route: 048
     Dates: start: 20031209, end: 20050118

REACTIONS (1)
  - CLOSTRIDIUM COLITIS [None]
